FAERS Safety Report 21387183 (Version 1)
Quarter: 2022Q3

REPORT INFORMATION
  Report Type: Spontaneous
  Country: US (occurrence: None)
  Receive Date: 20220927
  Receipt Date: 20220927
  Transmission Date: 20221027
  Serious: Yes (Life-Threatening)
  Sender: FDA-Public Use
  Company Number: None

PATIENT
  Age: 27 Year
  Sex: Female
  Weight: 82 kg

DRUGS (2)
  1. ASTRAMORPH [Suspect]
     Active Substance: MORPHINE SULFATE
     Indication: Pain
     Dosage: OTHER FREQUENCY : ONCE;?
     Route: 037
     Dates: start: 20220922, end: 20220922
  2. ROPIVACAINE [Suspect]
     Active Substance: ROPIVACAINE
     Indication: Pain
     Dosage: OTHER FREQUENCY : ONCE;?
     Route: 037
     Dates: start: 20220922, end: 20220922

REACTIONS (5)
  - Vomiting [None]
  - Dizziness [None]
  - Bradycardia [None]
  - Hypothermia [None]
  - Caesarean section [None]

NARRATIVE: CASE EVENT DATE: 20220922
